FAERS Safety Report 12308694 (Version 1)
Quarter: 2016Q2

REPORT INFORMATION
  Report Type: Spontaneous
  Country: US (occurrence: US)
  Receive Date: 20160427
  Receipt Date: 20160427
  Transmission Date: 20160815
  Serious: No
  Sender: FDA-Public Use
  Company Number: US-GLENMARK PHARMACEUTICALS INC, USA.-2015GMK017697

PATIENT

DRUGS (1)
  1. IMIQUIMOD. [Suspect]
     Active Substance: IMIQUIMOD
     Indication: SKIN PAPILLOMA
     Dosage: UNK UNK, BID (ONCE IN THE MORNING AND ONCE AT BED TIME)
     Route: 061
     Dates: start: 20150606, end: 20150613

REACTIONS (8)
  - Arthralgia [Unknown]
  - Oral herpes [Unknown]
  - Bone pain [Unknown]
  - Drug administration error [Unknown]
  - Blister [Unknown]
  - Intentional overdose [Unknown]
  - Influenza like illness [Unknown]
  - Pyrexia [Recovered/Resolved]

NARRATIVE: CASE EVENT DATE: 20150613
